FAERS Safety Report 22019094 (Version 6)
Quarter: 2024Q2

REPORT INFORMATION
  Report Type: Other
  Country: US (occurrence: None)
  Receive Date: 20230222
  Receipt Date: 20240503
  Transmission Date: 20240715
  Serious: Yes (Hospitalization, Other)
  Sender: FDA-Public Use
  Company Number: US-ROCHE-3290436

PATIENT
  Age: 48 Year
  Sex: Female
  Weight: 55.842 kg

DRUGS (8)
  1. OCREVUS [Suspect]
     Active Substance: OCRELIZUMAB
     Indication: Relapsing-remitting multiple sclerosis
     Dosage: DATE OF TREATMENT: (07/JAN/2021, 01/JUL/2021, 29/JUL/2022, 13/MAR/2023,14/SEP/2023).
     Route: 042
     Dates: start: 20181029
  2. OCREVUS [Suspect]
     Active Substance: OCRELIZUMAB
     Dosage: DATE OF TREATMENT: 14/SEP/2024
     Route: 042
     Dates: start: 20210713, end: 202309
  3. DEXAMETHASONE [Concomitant]
     Active Substance: DEXAMETHASONE
     Indication: Product used for unknown indication
     Route: 042
  4. AVONEX [Concomitant]
     Active Substance: INTERFERON BETA-1A
  5. REBIF [Concomitant]
     Active Substance: INTERFERON BETA-1A
  6. VALIUM [Concomitant]
     Active Substance: DIAZEPAM
  7. TECFIDERA [Concomitant]
     Active Substance: DIMETHYL FUMARATE
  8. TYSABRI [Concomitant]
     Active Substance: NATALIZUMAB

REACTIONS (11)
  - COVID-19 [Unknown]
  - Pneumonia [Recovering/Resolving]
  - Immunodeficiency [Unknown]
  - Bronchitis [Unknown]
  - Urticaria [Recovered/Resolved]
  - Pruritus [Recovered/Resolved]
  - Rash [Recovered/Resolved]
  - Chest pain [Not Recovered/Not Resolved]
  - Psychotic disorder [Recovered/Resolved]
  - Vital functions abnormal [Recovered/Resolved]
  - Illness [Unknown]

NARRATIVE: CASE EVENT DATE: 20221106
